FAERS Safety Report 5455648-2 (Version None)
Quarter: 2007Q3

REPORT INFORMATION
  Report Type: 
  Country: None (occurrence: None)
  Receive Date: 20070913
  Receipt Date: 20070913
  Transmission Date: 20080115
  Serious: Yes (Hospitalization)
  Sender: FDA-Public Use
  Company Number: None

PATIENT
  Age: 38 Year
  Sex: Male

DRUGS (2)
  1. MEPERIDINE HCL [Suspect]
     Indication: ENDOSCOPY
     Dosage: 50MG ONCE IV
     Route: 042
     Dates: start: 20070824, end: 20070824
  2. MIDAZOLAM HCL [Suspect]
     Indication: ENDOSCOPY
     Dosage: 4MG ONCE IV
     Route: 042
     Dates: start: 20070824, end: 20070824

REACTIONS (2)
  - MEDICATION ERROR [None]
  - SEDATION [None]
